FAERS Safety Report 9839844 (Version 1)
Quarter: 2014Q1

REPORT INFORMATION
  Report Type: Spontaneous
  Country: JP (occurrence: JP)
  Receive Date: 20140124
  Receipt Date: 20140124
  Transmission Date: 20141002
  Serious: Yes (Other)
  Sender: FDA-Public Use
  Company Number: JP-009507513-1401JPN009737

PATIENT
  Age: 84 Year
  Sex: Male

DRUGS (1)
  1. GASTER [Suspect]
     Dosage: 20 MG, UID/QD
     Route: 048

REACTIONS (2)
  - Rhabdomyolysis [Unknown]
  - Altered state of consciousness [Unknown]
